FAERS Safety Report 6988374-9 (Version None)
Quarter: 2010Q3

REPORT INFORMATION
  Report Type: 
  Country: None (occurrence: None)
  Receive Date: 20100916
  Receipt Date: 20100908
  Transmission Date: 20110219
  Serious: Yes (Other)
  Sender: FDA-Public Use
  Company Number: JP-MERCK-1009USA00270

PATIENT
  Age: 57 Year
  Sex: Female
  Weight: 49 kg

DRUGS (5)
  1. JANUVIA [Suspect]
     Indication: TYPE 2 DIABETES MELLITUS
     Route: 048
     Dates: start: 20100510, end: 20100825
  2. AMARYL [Concomitant]
     Indication: TYPE 2 DIABETES MELLITUS
     Route: 048
     Dates: start: 20100510
  3. EPALDOSE [Concomitant]
     Indication: DIABETIC NEUROPATHY
     Route: 048
     Dates: start: 20100705
  4. LORFENAMIN [Concomitant]
     Indication: DIABETIC NEUROPATHY
     Route: 048
     Dates: start: 20100719, end: 20100823
  5. MOBIC [Concomitant]
     Indication: DIABETIC NEUROPATHY
     Route: 048
     Dates: start: 20100705

REACTIONS (7)
  - COUGH [None]
  - ERYTHEMA OF EYELID [None]
  - EYELID OEDEMA [None]
  - FACE OEDEMA [None]
  - OCULOMUCOCUTANEOUS SYNDROME [None]
  - OROPHARYNGEAL PAIN [None]
  - RHINORRHOEA [None]
